FAERS Safety Report 6107712-2 (Version None)
Quarter: 2009Q1

REPORT INFORMATION
  Report Type: 
  Country: None (occurrence: None)
  Receive Date: 20090309
  Receipt Date: 20090227
  Transmission Date: 20090719
  Serious: Yes (Hospitalization)
  Sender: FDA-Public Use
  Company Number: A0731231A

PATIENT
  Age: 56 Year
  Sex: Female
  Weight: 127.3 kg

DRUGS (3)
  1. AVANDIA [Suspect]
     Dosage: 8MG PER DAY
     Route: 048
     Dates: start: 20050601, end: 20070801
  2. TRAMADOL [Concomitant]
  3. FLEXERIL [Concomitant]

REACTIONS (6)
  - CARDIAC DISORDER [None]
  - CARDIAC FAILURE CONGESTIVE [None]
  - CARDIAC TAMPONADE [None]
  - INJURY [None]
  - PERICARDIAL EFFUSION [None]
  - PLEURAL EFFUSION [None]
